FAERS Safety Report 10427156 (Version 1)
Quarter: 2014Q3

REPORT INFORMATION
  Report Type: Spontaneous
  Country: US (occurrence: None)
  Receive Date: 20140902
  Receipt Date: 20140902
  Transmission Date: 20150326
  Serious: Yes (Other)
  Sender: FDA-Public Use
  Company Number: None

PATIENT
  Age: 71 Year
  Sex: Male
  Weight: 87.09 kg

DRUGS (1)
  1. ATORVASTATIN / RANBAXY [Suspect]
     Active Substance: ATORVASTATIN
     Dosage: 20MG TABLETS DAILY
     Dates: start: 20120530, end: 20120604

REACTIONS (1)
  - Rash [None]

NARRATIVE: CASE EVENT DATE: 20120601
